FAERS Safety Report 18710752 (Version 1)
Quarter: 2021Q1

REPORT INFORMATION
  Report Type: Spontaneous
  Country: US (occurrence: US)
  Receive Date: 20210106
  Receipt Date: 20210106
  Transmission Date: 20210419
  Serious: Yes (Hospitalization)
  Sender: FDA-Public Use
  Company Number: None

PATIENT
  Age: 16 Year
  Sex: Male
  Weight: 91 kg

DRUGS (6)
  1. DEXAMETHASONE. [Suspect]
     Active Substance: DEXAMETHASONE
     Dates: end: 20201230
  2. DOXORUBICIN HYDROCHLORIDE. [Suspect]
     Active Substance: DOXORUBICIN HYDROCHLORIDE
     Dates: end: 20201223
  3. ZINECARD [Suspect]
     Active Substance: DEXRAZOXANE HYDROCHLORIDE
     Dates: end: 20201223
  4. GLEEVEC [Suspect]
     Active Substance: IMATINIB MESYLATE
     Dates: end: 20201230
  5. ONCASPAR [Suspect]
     Active Substance: PEGASPARGASE
     Dates: end: 20201214
  6. VINCRISTINE SULFATE. [Suspect]
     Active Substance: VINCRISTINE SULFATE
     Dates: end: 20201223

REACTIONS (9)
  - Klebsiella infection [None]
  - Septic shock [None]
  - Acute kidney injury [None]
  - Acute respiratory failure [None]
  - Melaena [None]
  - Haematochezia [None]
  - Hypertension [None]
  - Stomatitis [None]
  - Multiple organ dysfunction syndrome [None]

NARRATIVE: CASE EVENT DATE: 20201230
